FAERS Safety Report 10206556 (Version 1)
Quarter: 2014Q2

REPORT INFORMATION
  Report Type: Spontaneous
  Country: US (occurrence: MX)
  Receive Date: 20140530
  Receipt Date: 20140530
  Transmission Date: 20141212
  Serious: No
  Sender: FDA-Public Use
  Company Number: US-GLAXOSMITHKLINE-A1033974A

PATIENT
  Age: 45 Year
  Sex: Female

DRUGS (1)
  1. FLOLAN [Suspect]
     Indication: PULMONARY ARTERIAL HYPERTENSION
     Dosage: 17NGKM CONTINUOUS
     Route: 042
     Dates: start: 20121210, end: 20130426

REACTIONS (4)
  - Gastrooesophageal reflux disease [Unknown]
  - Weight decreased [Unknown]
  - Cough [Unknown]
  - Headache [Unknown]
